FAERS Safety Report 5165090-X (Version None)
Quarter: 2006Q4

REPORT INFORMATION
  Report Type: 
  Country: None (occurrence: None)
  Receive Date: 20061124
  Receipt Date: 20061110
  Transmission Date: 20070319
  Serious: Yes (Other)
  Sender: FDA-Public Use
  Company Number: 2006108647

PATIENT
  Age: 52 Year
  Sex: Male

DRUGS (2)
  1. LYRICA [Suspect]
     Indication: PAIN
     Dosage: 150 MG (75 MG)
     Dates: start: 20060101, end: 20060713
  2. LYRICA [Suspect]
     Indication: TEMPORAL ARTERITIS
     Dosage: 150 MG (75 MG)
     Dates: start: 20060101, end: 20060713

REACTIONS (14)
  - BLINDNESS TRANSIENT [None]
  - CONSTIPATION [None]
  - DRUG PRESCRIBING ERROR [None]
  - DRY MOUTH [None]
  - DYSGRAPHIA [None]
  - EJACULATION DISORDER [None]
  - ERECTILE DYSFUNCTION [None]
  - FAECALOMA [None]
  - OPTIC NERVE DISORDER [None]
  - SUICIDAL IDEATION [None]
  - VISUAL ACUITY REDUCED [None]
  - VISUAL EVOKED POTENTIALS ABNORMAL [None]
  - VISUAL FIELD DEFECT [None]
  - WEIGHT DECREASED [None]
